FAERS Safety Report 14696432 (Version 1)
Quarter: 2018Q1

REPORT INFORMATION
  Report Type: Spontaneous
  Country: US (occurrence: US)
  Receive Date: 20180330
  Receipt Date: 20180330
  Transmission Date: 20180509
  Serious: No
  Sender: FDA-Public Use
  Company Number: US-SA-2017SA049969

PATIENT
  Age: 58 Year
  Sex: Female

DRUGS (2)
  1. LACTAID [Concomitant]
     Active Substance: LACTASE
     Indication: LACTOSE INTOLERANCE
     Route: 065
  2. ALLEGRA ALLERGY [Suspect]
     Active Substance: FEXOFENADINE HYDROCHLORIDE
     Indication: MULTIPLE ALLERGIES
     Route: 065

REACTIONS (5)
  - Abdominal distension [Unknown]
  - Hypersensitivity [Unknown]
  - Flatulence [Unknown]
  - Condition aggravated [Unknown]
  - Influenza [Recovering/Resolving]
